FAERS Safety Report 4565209-5 (Version None)
Quarter: 2005Q1

REPORT INFORMATION
  Report Type: 
  Country: None (occurrence: None)
  Receive Date: 20050127
  Receipt Date: 20050127
  Transmission Date: 20050727
  Serious: No
  Sender: FDA-Public Use
  Company Number: None

PATIENT
  Age: 60 Year
  Sex: Female

DRUGS (3)
  1. ANDROGEL [Suspect]
     Dosage: APPLY CONTENTS OF 1 PACKET DAILY
     Dates: start: 20040609
  2. ANDROGEL [Suspect]
     Dosage: APPLY CONTENTS OF 1 PACKET DAILY
     Dates: start: 20040907
  3. ANDROGEL [Suspect]
     Dosage: APPLY CONTENTS OF 1 PACKET DAILY
     Dates: start: 20041230

REACTIONS (3)
  - BURNING SENSATION [None]
  - LACRIMATION INCREASED [None]
  - PHARMACEUTICAL PRODUCT COMPLAINT [None]
